FAERS Safety Report 7498985-2 (Version None)
Quarter: 2011Q2

REPORT INFORMATION
  Report Type: 
  Country: None (occurrence: None)
  Receive Date: 20110516
  Receipt Date: 20110502
  Transmission Date: 20111010
  Serious: Yes (Hospitalization)
  Sender: FDA-Public Use
  Company Number: 029113

PATIENT
  Sex: Male
  Weight: 104 kg

DRUGS (4)
  1. METFORMIN HCL [Concomitant]
  2. CIMZIA [Suspect]
     Indication: PSORIATIC ARTHROPATHY
     Dosage: (200 MG 1X/2 WEEKS INTRAMUSCULAR), (400 MG 1X/2 WEEKS SUBCUTANEOUS)
     Route: 058
  3. CIMZIA [Suspect]
     Indication: RHEUMATOID ARTHRITIS
     Dosage: (200 MG 1X/2 WEEKS INTRAMUSCULAR), (400 MG 1X/2 WEEKS SUBCUTANEOUS)
     Route: 058
  4. NAPROXEN [Concomitant]

REACTIONS (4)
  - POST PROCEDURAL HAEMORRHAGE [None]
  - OFF LABEL USE [None]
  - DEVICE LEAKAGE [None]
  - HAEMATOCRIT DECREASED [None]
